FAERS Safety Report 6819833-7 (Version None)
Quarter: 2010Q3

REPORT INFORMATION
  Report Type: 
  Country: None (occurrence: None)
  Receive Date: 20100707
  Receipt Date: 20100624
  Transmission Date: 20110219
  Serious: Yes (Other)
  Sender: FDA-Public Use
  Company Number: BR-GENENTECH-301880

PATIENT
  Sex: Male
  Weight: 103 kg

DRUGS (2)
  1. RITUXIMAB [Suspect]
     Indication: RHEUMATOID ARTHRITIS
     Dosage: UNK
     Route: 050
     Dates: start: 20090901, end: 20090915
  2. RITUXIMAB [Suspect]
     Indication: WEGENER'S GRANULOMATOSIS
     Dosage: UNK
     Route: 050
     Dates: start: 20100531, end: 20100621

REACTIONS (10)
  - ARTHRALGIA [None]
  - BLOOD PRESSURE INCREASED [None]
  - BURNING SENSATION [None]
  - DYSPNOEA [None]
  - EYE SWELLING [None]
  - HEADACHE [None]
  - LABORATORY TEST ABNORMAL [None]
  - RASH MACULAR [None]
  - SEXUAL DYSFUNCTION [None]
  - WOUND [None]
